FAERS Safety Report 8330687 (Version 2)
Quarter: 2013Q2

REPORT INFORMATION
  Report Type: Spontaneous
  Country: US (occurrence: US)
  Receive Date: 20120111
  Receipt Date: 20130513
  Transmission Date: 20140414
  Serious: Yes (Other)
  Sender: FDA-Public Use
  Company Number: US-ROCHE-794708

PATIENT
  Age: 17 Year
  Sex: Female
  Weight: 92.16 kg

DRUGS (2)
  1. ACCUTANE [Suspect]
     Indication: ACNE
     Route: 048
     Dates: start: 20000724, end: 20010524
  2. ACCUTANE [Suspect]
     Route: 048
     Dates: start: 1999, end: 2001

REACTIONS (12)
  - Inflammatory bowel disease [Unknown]
  - Irritable bowel syndrome [Unknown]
  - Gastrooesophageal reflux disease [Unknown]
  - Depression [Unknown]
  - Anaemia [Unknown]
  - Blood triglycerides increased [Unknown]
  - Lip dry [Unknown]
  - Arthralgia [Unknown]
  - Epistaxis [Unknown]
  - Cheilitis [Unknown]
  - Eczema asteatotic [Unknown]
  - Vertigo [Unknown]
